FAERS Safety Report 19945197 (Version 3)
Quarter: 2021Q4

REPORT INFORMATION
  Report Type: Spontaneous
  Country: PL (occurrence: PL)
  Receive Date: 20211012
  Receipt Date: 20211203
  Transmission Date: 20220304
  Serious: Yes (Life-Threatening, Hospitalization)
  Sender: FDA-Public Use
  Company Number: None

PATIENT
  Age: 1 Year
  Sex: Male
  Weight: 12 kg

DRUGS (1)
  1. NEISVAC-C [Suspect]
     Active Substance: MENINGOCOCCAL POLYSACCHARIDE VACCINE C
     Indication: Immunisation
     Dosage: DOSE NUMBER UNKNOWN, SINGLE
     Dates: start: 20180509, end: 20180509

REACTIONS (5)
  - Pyrexia [Unknown]
  - Sepsis [Unknown]
  - Aggression [Unknown]
  - Anxiety [Unknown]
  - Infantile vomiting [Unknown]

NARRATIVE: CASE EVENT DATE: 20180510
